FAERS Safety Report 14648765 (Version 1)
Quarter: 2018Q1

REPORT INFORMATION
  Report Type: Spontaneous
  Country: IE (occurrence: IE)
  Receive Date: 20180316
  Receipt Date: 20180316
  Transmission Date: 20180509
  Serious: Yes (Hospitalization)
  Sender: FDA-Public Use
  Company Number: IE-PFIZER INC-2018102068

PATIENT
  Age: 71 Year
  Sex: Female

DRUGS (9)
  1. ASPIRIN EC [Concomitant]
     Active Substance: ASPIRIN
     Dosage: 75 MG, 1X/DAY (NUMBER OF UNITS IN THE INTERVAL: 24; DEFINITION OF THE TIME INTERVAL UNIT: HOUR)
     Route: 048
  2. BRILIQUE [Concomitant]
     Active Substance: TICAGRELOR
     Dosage: 90 MG, 2X/DAY (NUMBER OF UNITS IN THE INTERVAL: 12; DEFINITION OF THE TIME INTERVAL UNIT: HOUR)
     Route: 048
  3. ATORVASTATIN CALCIUM. [Suspect]
     Active Substance: ATORVASTATIN CALCIUM
     Dosage: 80 MG, UNK
     Route: 048
     Dates: start: 201708
  4. BISOPROLOL [Concomitant]
     Active Substance: BISOPROLOL
     Dosage: 2.5 MG (NUMBER OF UNITS IN THE INTERVAL: 24; DEFINITION OF THE TIME INTERVAL UNIT: HOUR)
     Route: 048
  5. NICORETTE INVISI [Concomitant]
     Active Substance: NICOTINE
     Dosage: 25 MG (25MG/16 HOUR PATCH = DISCONTINUED)
  6. PANTOPRAZOLE [Concomitant]
     Active Substance: PANTOPRAZOLE
     Dosage: 40 MG, 1X/DAY (NUMBER OF UNITS IN THE INTERVAL: 24; DEFINITION OF THE TIME INTERVAL UNIT: HOUR)
     Route: 048
  7. PARACETAMOL [Concomitant]
     Active Substance: ACETAMINOPHEN
     Dosage: 1G QDS PRN (NUMBER OF UNITS IN THE INTERVAL: 6; DEFINITION OF THE TIME INTERVAL UNIT: HOUR)
  8. RAMIPRIL. [Concomitant]
     Active Substance: RAMIPRIL
     Dosage: HELD DURING HOSPITAL ADMISSION
     Route: 048
  9. SPIRONOLACTONE. [Concomitant]
     Active Substance: SPIRONOLACTONE
     Dosage: HELD DURING HOSPITAL ADMISSION
     Route: 048

REACTIONS (6)
  - Hypovolaemia [Recovering/Resolving]
  - Acidosis [Recovering/Resolving]
  - Liver function test abnormal [Recovering/Resolving]
  - Rhabdomyolysis [Recovering/Resolving]
  - Malaise [Recovering/Resolving]
  - Acute kidney injury [Recovering/Resolving]

NARRATIVE: CASE EVENT DATE: 20180120
